FAERS Safety Report 25105176 (Version 1)
Quarter: 2025Q1

REPORT INFORMATION
  Report Type: Spontaneous
  Country: US (occurrence: None)
  Receive Date: 20250320
  Receipt Date: 20250320
  Transmission Date: 20250409
  Serious: Yes (Hospitalization)
  Sender: FDA-CTU
  Company Number: None

PATIENT
  Age: 91 Year
  Sex: Male

DRUGS (1)
  1. APIXABAN [Suspect]
     Active Substance: APIXABAN
     Indication: Deep vein thrombosis
     Dates: start: 20241004

REACTIONS (4)
  - Lower gastrointestinal haemorrhage [None]
  - Anaemia [None]
  - Red blood cell transfusion [None]
  - Therapy interrupted [None]

NARRATIVE: CASE EVENT DATE: 20250225
